FAERS Safety Report 7038041-0 (Version None)
Quarter: 2010Q4

REPORT INFORMATION
  Report Type: 
  Country: None (occurrence: None)
  Receive Date: 20101011
  Receipt Date: 20101005
  Transmission Date: 20110411
  Serious: Yes (Other)
  Sender: FDA-Public Use
  Company Number: JP-PFIZER INC-2010126313

PATIENT
  Age: 61 Year
  Sex: Male

DRUGS (6)
  1. SELARA [Suspect]
     Indication: HYPERTENSION
     Dosage: 50 MG/DAY
     Route: 048
     Dates: start: 20100811
  2. GASTER [Concomitant]
     Dosage: 40 MG/DAY
     Route: 048
     Dates: start: 20100929
  3. NORVASC [Concomitant]
     Indication: HYPERTENSION
     Dosage: 5 MG/DAY
     Route: 048
     Dates: start: 20100929
  4. RENIVACE [Concomitant]
     Indication: HYPERTENSION
     Dosage: 10 MG/DAY
     Route: 048
     Dates: start: 20100929
  5. TENORMIN [Concomitant]
     Indication: HYPERTENSION
     Dosage: 50 MG/DAY
     Route: 048
     Dates: start: 20100929
  6. FAROM [Concomitant]
     Indication: DIVERTICULITIS
     Dosage: 600 MG/DAY
     Route: 048

REACTIONS (1)
  - BLOOD CREATINE PHOSPHOKINASE INCREASED [None]
